FAERS Safety Report 26088954 (Version 1)
Quarter: 2025Q4

REPORT INFORMATION
  Report Type: Spontaneous
  Country: US (occurrence: US)
  Receive Date: 20251125
  Receipt Date: 20251125
  Transmission Date: 20260117
  Serious: Yes (Other)
  Sender: DAIICHI
  Company Number: US-DSJP-DS-2025-178649-US

PATIENT
  Age: 69 Year
  Sex: Male

DRUGS (1)
  1. ENHERTU [Suspect]
     Active Substance: FAM-TRASTUZUMAB DERUXTECAN-NXKI
     Indication: Oesophageal carcinoma
     Dosage: UNK
     Route: 065
     Dates: start: 202503

REACTIONS (2)
  - Neuropathy peripheral [Unknown]
  - Abdominal pain upper [Unknown]
